FAERS Safety Report 9800068 (Version 1)
Quarter: 2014Q1

REPORT INFORMATION
  Report Type: Spontaneous
  Country: US (occurrence: US)
  Receive Date: 20140106
  Receipt Date: 20140106
  Transmission Date: 20141002
  Serious: No
  Sender: FDA-Public Use
  Company Number: US-GILEAD-2010-0032173

PATIENT
  Age: 74 Year
  Sex: Female
  Weight: 47.63 kg

DRUGS (14)
  1. LETAIRIS [Suspect]
     Indication: PULMONARY ARTERIAL HYPERTENSION
     Route: 048
     Dates: start: 20090326
  2. OXYGEN [Concomitant]
  3. REMODULIN [Concomitant]
  4. ASPIRIN [Concomitant]
  5. METOLAZONE [Concomitant]
  6. FUROSEMIDE [Concomitant]
  7. NIFEDIAC CC [Concomitant]
  8. KLOR-CON [Concomitant]
  9. VISINE EYE DROPS [Concomitant]
  10. ALEVE [Concomitant]
  11. LOVASTATIN [Concomitant]
  12. OMEPRAZOLE [Concomitant]
  13. LEVOXYL [Concomitant]
  14. PREDNISONE [Concomitant]

REACTIONS (1)
  - Dizziness [Unknown]
